FAERS Safety Report 8005054-1 (Version None)
Quarter: 2011Q4

REPORT INFORMATION
  Report Type: 
  Country: None (occurrence: None)
  Receive Date: 20111223
  Receipt Date: 20111216
  Transmission Date: 20120403
  Serious: Yes (Other)
  Sender: FDA-Public Use
  Company Number: AU-B.I. PHARMACEUTICALS,INC./RIDGEFIELD-2011-AU-02263AU

PATIENT
  Sex: Male
  Weight: 77 kg

DRUGS (9)
  1. SOTOCOR [Concomitant]
     Indication: ATRIAL FIBRILLATION
     Dosage: 80 MG
     Dates: start: 20060125
  2. PERINDOPRIL ERBUMINE [Concomitant]
     Indication: HYPERTENSION
     Dosage: 2.5 MG
     Dates: start: 20070516
  3. ZOCOR [Concomitant]
     Indication: HYPERCHOLESTEROLAEMIA
     Dosage: 40 MG
     Dates: start: 20020530
  4. FERROGRAD C [Concomitant]
     Dosage: 500 MG
  5. LANOXIN [Concomitant]
     Indication: CARDIAC FAILURE CONGESTIVE
     Dates: start: 20060603
  6. PROGOUT [Concomitant]
     Indication: GOUT
     Dosage: 100 MG
     Dates: start: 20010121
  7. PRADAXA [Suspect]
     Indication: ATRIAL FIBRILLATION
     Dosage: 220 MG
     Dates: start: 20110927, end: 20111003
  8. LASIX [Concomitant]
     Indication: CARDIAC FAILURE CONGESTIVE
     Dosage: 80 MG
     Dates: start: 20010802
  9. RANI 2 [Concomitant]
     Dates: start: 20110321

REACTIONS (1)
  - RENAL IMPAIRMENT [None]
